FAERS Safety Report 5937881-6 (Version None)
Quarter: 2008Q4

REPORT INFORMATION
  Report Type: 
  Country: None (occurrence: None)
  Receive Date: 20081031
  Receipt Date: 20081029
  Transmission Date: 20090506
  Serious: Yes (Death, Other)
  Sender: FDA-Public Use
  Company Number: JP-SANOFI-SYNTHELABO-F01200801663

PATIENT
  Sex: Female
  Weight: 53.6 kg

DRUGS (11)
  1. DECADRON [Concomitant]
     Dosage: UNK
     Dates: start: 20070706, end: 20070907
  2. KYTRIL [Concomitant]
     Dosage: UNK
     Dates: start: 20070706, end: 20070907
  3. IODINE [Concomitant]
     Dosage: UNK
     Dates: start: 20070720, end: 20071004
  4. CEPHARANTHIN [Concomitant]
     Dosage: UNK
     Dates: start: 20070712, end: 20071004
  5. MAGLAX [Concomitant]
     Dosage: UNK
     Dates: start: 20070712, end: 20071004
  6. DAI-KENCHU-TO [Concomitant]
     Dosage: UNK
     Dates: start: 20070712, end: 20071004
  7. AMOBAN [Concomitant]
     Dosage: UNK
     Dates: start: 20070712, end: 20071004
  8. AVASTIN [Suspect]
     Route: 041
     Dates: start: 20070907, end: 20070907
  9. LEUCOVORIN CALCIUM [Suspect]
     Dosage: UNK
     Route: 041
     Dates: start: 20070907, end: 20070907
  10. FLUOROURACIL [Suspect]
     Route: 042
     Dates: start: 20070907, end: 20070909
  11. ELPLAT [Suspect]
     Indication: COLON CANCER RECURRENT
     Route: 041
     Dates: start: 20070907, end: 20070907

REACTIONS (2)
  - DISEASE PROGRESSION [None]
  - NEUTROPHIL COUNT DECREASED [None]
